FAERS Safety Report 8849356 (Version 2)
Quarter: 2013Q1

REPORT INFORMATION
  Report Type: Spontaneous
  Country: US (occurrence: US)
  Receive Date: 20121015
  Receipt Date: 20130131
  Transmission Date: 20140127
  Serious: Yes (Death, Life-Threatening, Hospitalization)
  Sender: FDA-Public Use
  Company Number: US-ELI_LILLY_AND_COMPANY-US201210003011

PATIENT
  Age: 77 Year
  Sex: Female

DRUGS (3)
  1. ADCIRCA [Suspect]
  2. TYVASO [Concomitant]
     Dosage: 9 DF, UNK
     Route: 055
  3. COUMADIN [Concomitant]

REACTIONS (4)
  - Pulseless electrical activity [Fatal]
  - Microangiopathy [Unknown]
  - Scleroderma [Unknown]
  - Pulmonary arterial hypertension [Unknown]
